FAERS Safety Report 10391458 (Version 6)
Quarter: 2015Q1

REPORT INFORMATION
  Report Type: Report from Study
  Country: US (occurrence: US)
  Receive Date: 20140818
  Receipt Date: 20150327
  Transmission Date: 20150720
  Serious: Yes (Other)
  Sender: FDA-Public Use
  Company Number: US-MYLANLABS-2014S1010106

PATIENT
  Age: 30 Year
  Sex: Female
  Weight: 69.39 kg

DRUGS (6)
  1. AMNESTEEM [Suspect]
     Active Substance: ISOTRETINOIN
     Dosage: 40 MG,BID
     Dates: start: 20101230
  2. AZELAIC ACID [Concomitant]
     Active Substance: AZELAIC ACID
     Route: 061
  3. CETIRIZINE [Concomitant]
     Active Substance: CETIRIZINE HYDROCHLORIDE
  4. PRENATAL                           /00231801/ [Concomitant]
  5. PYRIDOXINE [Concomitant]
     Active Substance: PYRIDOXINE
  6. ONDANSETRON [Concomitant]
     Active Substance: ONDANSETRON
     Route: 060

REACTIONS (10)
  - Musculoskeletal pain [Recovered/Resolved]
  - Headache [Recovered/Resolved]
  - Nausea [Recovered/Resolved]
  - Specific gravity urine abnormal [Recovered/Resolved]
  - Normal newborn [Recovered/Resolved]
  - Premature separation of placenta [Recovered/Resolved]
  - Haemorrhage in pregnancy [Recovered/Resolved]
  - Dizziness [Recovered/Resolved]
  - Lymphocyte count decreased [Recovered/Resolved]
  - Maternal exposure before pregnancy [Recovered/Resolved]

NARRATIVE: CASE EVENT DATE: 20140329
